FAERS Safety Report 4520381-8 (Version None)
Quarter: 2004Q4

REPORT INFORMATION
  Report Type: 
  Country: None (occurrence: None)
  Receive Date: 20041203
  Receipt Date: 20041122
  Transmission Date: 20050328
  Serious: Yes (Hospitalization, Other)
  Sender: FDA-Public Use
  Company Number: 2004240091GB

PATIENT
  Age: 33 Year
  Sex: Female
  Weight: 67 kg

DRUGS (4)
  1. SYNAREL SPRAY (NAFARELIN ACETATE) [Suspect]
     Indication: IN VITRO FERTILISATION
     Dosage: NASAL
     Route: 045
     Dates: start: 20040101
  2. GONAL-F [Concomitant]
  3. CYCLOGEST ^COLLINS^ (PROGESTERONE) [Concomitant]
  4. GONADOTROPHIN CHORIONIC (CHORIONIC GONADOTROPHIN) [Concomitant]

REACTIONS (3)
  - BLINDNESS UNILATERAL [None]
  - DRUG INEFFECTIVE [None]
  - OPTIC NEURITIS [None]
